FAERS Safety Report 23044297 (Version 1)
Quarter: 2023Q4

REPORT INFORMATION
  Report Type: Report from Study
  Country: IL (occurrence: None)
  Receive Date: 20231009
  Receipt Date: 20231009
  Transmission Date: 20240110
  Serious: Yes (Hospitalization)
  Sender: FDA-Public Use
  Company Number: IL-ROCHE-3434590

PATIENT
  Age: 64 Year
  Sex: Female
  Weight: 63 kg

DRUGS (21)
  1. EPCORITAMAB [Suspect]
     Active Substance: EPCORITAMAB
     Indication: Diffuse large B-cell lymphoma
     Dosage: 48 MG C1 (STEP-UP), CYCLES 2 - 4 (21-DAY CYCLE, WEEKLY DOSE), C5 - 8 (21-DAY CYCLE, EVERY 3?WEEKS) P
     Route: 058
     Dates: start: 20230620
  2. VINCRISTINE [Suspect]
     Active Substance: VINCRISTINE
     Indication: Diffuse large B-cell lymphoma
     Route: 042
     Dates: start: 20230620
  3. RITUXIMAB [Suspect]
     Active Substance: RITUXIMAB
     Indication: Diffuse large B-cell lymphoma
     Route: 041
     Dates: start: 20230620
  4. CYCLOPHOSPHAMIDE [Suspect]
     Active Substance: CYCLOPHOSPHAMIDE
     Indication: Diffuse large B-cell lymphoma
     Route: 042
     Dates: start: 20230620
  5. DOXORUBICIN [Suspect]
     Active Substance: DOXORUBICIN
     Indication: Diffuse large B-cell lymphoma
     Route: 042
     Dates: start: 20230620
  6. PREDNISONE [Suspect]
     Active Substance: PREDNISONE
     Indication: Diffuse large B-cell lymphoma
     Dosage: C1-6, DAY 1-5, EVERY 1 DAYS
     Route: 048
     Dates: start: 20230620
  7. ESTRIOL [Concomitant]
     Active Substance: ESTRIOL
     Indication: Atrophic vulvovaginitis
     Dates: start: 2015
  8. METAMIZOLE [Concomitant]
     Active Substance: METAMIZOLE
     Dates: start: 2023
  9. METAMIZOLE [Concomitant]
     Active Substance: METAMIZOLE
     Dates: start: 20230621, end: 20230621
  10. METAMIZOLE [Concomitant]
     Active Substance: METAMIZOLE
     Dates: start: 20230724, end: 20230724
  11. OXYCODONE [Concomitant]
     Active Substance: OXYCODONE
     Dates: start: 202305
  12. ACETAMINOPHEN [Concomitant]
     Active Substance: ACETAMINOPHEN
     Dates: start: 20230620
  13. PROMETHAZINE [Concomitant]
     Active Substance: PROMETHAZINE HYDROCHLORIDE
     Dates: start: 20230620
  14. ALLOPURINOL [Concomitant]
     Active Substance: ALLOPURINOL
     Dates: start: 20230620
  15. SULFAMETHOXAZOLE\TRIMETHOPRIM [Concomitant]
     Active Substance: SULFAMETHOXAZOLE\TRIMETHOPRIM
     Dates: start: 20230627
  16. METOCLOPRAMIDE [Concomitant]
     Active Substance: METOCLOPRAMIDE
     Indication: Nausea
     Dates: start: 20230627
  17. FULPHILA [Concomitant]
     Active Substance: PEGFILGRASTIM-JMDB
     Dates: start: 20230713
  18. CANNABIS SATIVA SEED OIL\HERBALS [Concomitant]
     Active Substance: CANNABIS SATIVA SEED OIL\HERBALS
     Indication: Insomnia
     Dosage: 1 DROPS, 2/DAYS
     Dates: start: 20230720
  19. GRANISETRON [Concomitant]
     Active Substance: GRANISETRON
     Indication: Nausea
     Dosage: 1 MG, 2/DAYS
     Dates: start: 20230801
  20. GRANISETRON [Concomitant]
     Active Substance: GRANISETRON
     Dates: start: 20230823, end: 20230823
  21. DEXAMETHASONE [Concomitant]
     Active Substance: DEXAMETHASONE
     Dates: start: 20230621

REACTIONS (1)
  - Febrile neutropenia [Recovered/Resolved]

NARRATIVE: CASE EVENT DATE: 20230920
